FAERS Safety Report 8257110-0 (Version None)
Quarter: 2012Q2

REPORT INFORMATION
  Report Type: 
  Country: None (occurrence: None)
  Receive Date: 20120403
  Receipt Date: 20120330
  Transmission Date: 20120825
  Serious: Yes (Other)
  Sender: FDA-Public Use
  Company Number: US-PFIZER INC-2012068279

PATIENT
  Age: 75 Year
  Sex: Male
  Weight: 72 kg

DRUGS (3)
  1. LIPITOR [Suspect]
     Indication: BLOOD TRIGLYCERIDES INCREASED
  2. LIPITOR [Suspect]
     Indication: BLOOD CHOLESTEROL INCREASED
     Dosage: 10 MG, 1X/DAY
     Route: 048
  3. NIASPAN [Concomitant]
     Indication: BLOOD TRIGLYCERIDES
     Dosage: 1000 MG, DAILY

REACTIONS (3)
  - WEIGHT INCREASED [None]
  - CAROTID ARTERY OCCLUSION [None]
  - BLOOD CHOLESTEROL DECREASED [None]
